FAERS Safety Report 5500219-2 (Version None)
Quarter: 2007Q4

REPORT INFORMATION
  Report Type: 
  Country: None (occurrence: None)
  Receive Date: 20071029
  Receipt Date: 20071017
  Transmission Date: 20080405
  Serious: Yes (Other)
  Sender: FDA-Public Use
  Company Number: CH-WYE-H00700107

PATIENT
  Sex: Female

DRUGS (5)
  1. PANTOPRAZOLE SODIUM [Suspect]
     Dosage: UNKNOWN
  2. MARCUMAR [Concomitant]
     Dosage: UNKNOWN
  3. ALDACTONE [Concomitant]
     Dosage: UNKNOWN
  4. DIGOXIN [Concomitant]
     Dosage: UNKNOWN
  5. TORSEMIDE [Concomitant]
     Dosage: UNKNOWN

REACTIONS (2)
  - BRADYCARDIA [None]
  - FATIGUE [None]
